FAERS Safety Report 7702496-6 (Version None)
Quarter: 2011Q3

REPORT INFORMATION
  Report Type: 
  Country: None (occurrence: None)
  Receive Date: 20110823
  Receipt Date: 20110815
  Transmission Date: 20111222
  Serious: Yes (Hospitalization)
  Sender: FDA-Public Use
  Company Number: US-BIOGENIDEC-2011BI030923

PATIENT
  Age: 46 Year
  Sex: Female

DRUGS (1)
  1. AVONEX [Suspect]
     Indication: MULTIPLE SCLEROSIS
     Route: 030
     Dates: start: 20080901

REACTIONS (5)
  - INJECTION SITE PAIN [None]
  - BREAST CANCER [None]
  - INJECTION SITE WARMTH [None]
  - POST PROCEDURAL INFECTION [None]
  - INJECTION SITE ERYTHEMA [None]
